FAERS Safety Report 8362891-1 (Version None)
Quarter: 2012Q2

REPORT INFORMATION
  Report Type: 
  Country: None (occurrence: None)
  Receive Date: 20120514
  Receipt Date: 20120514
  Transmission Date: 20120825
  Serious: Yes (Other)
  Sender: FDA-Public Use
  Company Number: None

PATIENT
  Age: 74 Year
  Sex: Male
  Weight: 72.5755 kg

DRUGS (1)
  1. ATORVASTATIN 80 MG RANBAXY PHARMACY [Suspect]
     Indication: BLOOD CHOLESTEROL INCREASED
     Dosage: 1TABLET DAILY PO
     Route: 048
     Dates: start: 20120201, end: 20120506

REACTIONS (7)
  - SLEEP DISORDER [None]
  - GAIT DISTURBANCE [None]
  - DYSSTASIA [None]
  - MYALGIA [None]
  - PAIN [None]
  - PRODUCT SUBSTITUTION ISSUE [None]
  - ARTHRALGIA [None]
